FAERS Safety Report 5370928-7 (Version None)
Quarter: 2007Q2

REPORT INFORMATION
  Report Type: 
  Country: None (occurrence: None)
  Receive Date: 20070626
  Receipt Date: 20060905
  Transmission Date: 20071010
  Serious: Yes (Death, Life-Threatening, Hospitalization, Other)
  Sender: FDA-Public Use
  Company Number: VE-PFIZER INC-2006107563

PATIENT
  Sex: Female
  Weight: 56 kg

DRUGS (8)
  1. SUTENT [Suspect]
     Indication: RENAL CELL CARCINOMA STAGE UNSPECIFIED
     Route: 048
     Dates: start: 20060815, end: 20060903
  2. ENALAPRIL [Concomitant]
     Indication: HYPERTENSION
     Route: 048
     Dates: start: 19860101, end: 20060903
  3. NIFEDIPINE [Concomitant]
     Indication: HYPERTENSION
     Route: 048
  4. DICLOFENAC SODIUM [Concomitant]
     Indication: PAIN
     Route: 048
     Dates: start: 20060701, end: 20060903
  5. CODEINE SUL TAB [Concomitant]
     Route: 048
     Dates: start: 20060701, end: 20060903
  6. NIMODIPINE [Concomitant]
     Indication: HYPERTENSION
     Route: 048
  7. AMIODARONE [Concomitant]
     Indication: HYPERTENSION
     Route: 048
  8. ZOLEDRONIC ACID [Concomitant]
     Indication: METASTASES TO BONE
     Dates: start: 20060708, end: 20060708

REACTIONS (11)
  - ACUTE RESPIRATORY FAILURE [None]
  - ANAEMIA [None]
  - BRADYCARDIA [None]
  - GASTROINTESTINAL HAEMORRHAGE [None]
  - HYPERMAGNESAEMIA [None]
  - HYPONATRAEMIA [None]
  - LEUKOPENIA [None]
  - MULTI-ORGAN FAILURE [None]
  - RENAL FAILURE ACUTE [None]
  - SEPSIS [None]
  - THROMBOCYTOPENIA [None]
